FAERS Safety Report 8532472-5 (Version None)
Quarter: 2012Q3

REPORT INFORMATION
  Report Type: 
  Country: None (occurrence: None)
  Receive Date: 20120716
  Receipt Date: 20120716
  Transmission Date: 20120928
  Serious: Yes (Other)
  Sender: FDA-Public Use
  Company Number: None

PATIENT
  Age: 55 Year
  Sex: Female
  Weight: 99.7913 kg

DRUGS (1)
  1. CYMBALTA [Suspect]
     Indication: FIBROMYALGIA
     Dosage: 60 MG. ONCE DAILY PO
     Route: 048
     Dates: start: 20120224, end: 20120713

REACTIONS (10)
  - URINARY TRACT INFECTION [None]
  - NASOPHARYNGITIS [None]
  - RHINORRHOEA [None]
  - HERPES ZOSTER [None]
  - CHEILITIS [None]
  - EAR PAIN [None]
  - FATIGUE [None]
  - IMMUNE SYSTEM DISORDER [None]
  - OROPHARYNGEAL PAIN [None]
  - NIGHT SWEATS [None]
